FAERS Safety Report 11439618 (Version 1)
Quarter: 2015Q3

REPORT INFORMATION
  Report Type: Spontaneous
  Country: US (occurrence: US)
  Receive Date: 20150901
  Receipt Date: 20150901
  Transmission Date: 20151125
  Serious: Yes (Other)
  Sender: FDA-Public Use
  Company Number: US-ROCHE-1105897

PATIENT
  Sex: Female

DRUGS (2)
  1. RIBAVIRIN. [Suspect]
     Active Substance: RIBAVIRIN
     Indication: HEPATITIS C
     Route: 065
     Dates: start: 20111023
  2. PEGASYS [Suspect]
     Active Substance: PEGINTERFERON ALFA-2A
     Indication: HEPATITIS C
     Route: 065
     Dates: start: 20111023

REACTIONS (14)
  - Gait disturbance [Unknown]
  - Muscle atrophy [Unknown]
  - Suicidal ideation [Unknown]
  - Anaemia [Unknown]
  - Headache [Unknown]
  - Rash [Unknown]
  - White blood cell count decreased [Unknown]
  - Platelet count decreased [Unknown]
  - Weight decreased [Unknown]
  - Insomnia [Unknown]
  - Hyperaesthesia [Unknown]
  - Red blood cell count decreased [Unknown]
  - Depression [Unknown]
  - Cough [Unknown]
